FAERS Safety Report 5124899-9 (Version None)
Quarter: 2006Q3

REPORT INFORMATION
  Report Type: 
  Country: None (occurrence: None)
  Receive Date: 20060822
  Receipt Date: 20060508
  Transmission Date: 20061208
  Serious: No
  Sender: FDA-Public Use
  Company Number: PHEH2006US02080

PATIENT
  Sex: Female

DRUGS (6)
  1. ENABLEX [Suspect]
     Indication: HYPERTONIC BLADDER
     Dosage: 15 MG ,QD,
     Dates: start: 20060209
  2. PREVACID [Concomitant]
  3. FUROSEMIDE [Concomitant]
  4. DILANTIN /AUS/(PHENYTOIN SODIUM) [Concomitant]
  5. KLONOPIN [Concomitant]
  6. SOMA [Concomitant]

REACTIONS (2)
  - FIBROCYSTIC BREAST DISEASE [None]
  - NAUSEA [None]
